FAERS Safety Report 19985936 (Version 6)
Quarter: 2022Q2

REPORT INFORMATION
  Report Type: Report from Study
  Country: US (occurrence: US)
  Receive Date: 20211022
  Receipt Date: 20220621
  Transmission Date: 20220721
  Serious: Yes (Hospitalization, Other)
  Sender: FDA-Public Use
  Company Number: US-TAKEDA-2021TUS047901

PATIENT
  Age: 61 Year
  Sex: Female

DRUGS (16)
  1. TEDUGLUTIDE [Suspect]
     Active Substance: TEDUGLUTIDE
     Indication: Short-bowel syndrome
     Dosage: 4.21 MILLIGRAM, QD
     Route: 058
     Dates: start: 20210629
  2. TEDUGLUTIDE [Suspect]
     Active Substance: TEDUGLUTIDE
     Indication: Short-bowel syndrome
     Dosage: 4.21 MILLIGRAM, QD
     Route: 058
     Dates: start: 20210629
  3. TEDUGLUTIDE [Suspect]
     Active Substance: TEDUGLUTIDE
     Indication: Short-bowel syndrome
     Dosage: 4.21 MILLIGRAM, QD
     Route: 058
     Dates: start: 20210629
  4. TEDUGLUTIDE [Suspect]
     Active Substance: TEDUGLUTIDE
     Indication: Short-bowel syndrome
     Dosage: 4.21 MILLIGRAM, QD
     Route: 058
     Dates: start: 20210629
  5. TEDUGLUTIDE [Suspect]
     Active Substance: TEDUGLUTIDE
     Indication: Crohn^s disease
     Dosage: 4.21 MILLIGRAM, QD
     Route: 058
     Dates: start: 20210628
  6. TEDUGLUTIDE [Suspect]
     Active Substance: TEDUGLUTIDE
     Indication: Crohn^s disease
     Dosage: 4.21 MILLIGRAM, QD
     Route: 058
     Dates: start: 20210628
  7. TEDUGLUTIDE [Suspect]
     Active Substance: TEDUGLUTIDE
     Indication: Crohn^s disease
     Dosage: 4.21 MILLIGRAM, QD
     Route: 058
     Dates: start: 20210628
  8. TEDUGLUTIDE [Suspect]
     Active Substance: TEDUGLUTIDE
     Indication: Crohn^s disease
     Dosage: 4.21 MILLIGRAM, QD
     Route: 058
     Dates: start: 20210628
  9. TEDUGLUTIDE [Suspect]
     Active Substance: TEDUGLUTIDE
     Dosage: 4.21 MILLIGRAM, QD
     Route: 058
     Dates: start: 202106
  10. TEDUGLUTIDE [Suspect]
     Active Substance: TEDUGLUTIDE
     Dosage: 4.21 MILLIGRAM, QD
     Route: 058
     Dates: start: 202106
  11. TEDUGLUTIDE [Suspect]
     Active Substance: TEDUGLUTIDE
     Dosage: 4.21 MILLIGRAM, QD
     Route: 058
     Dates: start: 202106
  12. TEDUGLUTIDE [Suspect]
     Active Substance: TEDUGLUTIDE
     Dosage: 4.21 MILLIGRAM, QD
     Route: 058
     Dates: start: 202106
  13. ENTYVIO [Concomitant]
     Active Substance: VEDOLIZUMAB
     Dosage: 300 GRAM
     Route: 058
  14. DULOXETINE [Concomitant]
     Active Substance: DULOXETINE
     Dosage: UNK UNK, BID
     Route: 065
  15. SEROQUEL [Concomitant]
     Active Substance: QUETIAPINE FUMARATE
     Route: 065
  16. LYRICA [Concomitant]
     Active Substance: PREGABALIN
     Dosage: UNK UNK, BID
     Route: 048

REACTIONS (21)
  - Pneumonia [Unknown]
  - Haemoglobin decreased [Unknown]
  - Crohn^s disease [Unknown]
  - Urinary retention [Unknown]
  - Tremor [Unknown]
  - Peripheral swelling [Recovered/Resolved]
  - Dizziness [Unknown]
  - Injection site bruising [Unknown]
  - Chronic obstructive pulmonary disease [Unknown]
  - Sinus disorder [Unknown]
  - Abdominal pain [Unknown]
  - Cough [Unknown]
  - Nasopharyngitis [Unknown]
  - Headache [Unknown]
  - Abdominal pain upper [Unknown]
  - Stress [Unknown]
  - Hyperhidrosis [Unknown]
  - Asthenia [Unknown]
  - Dyspnoea [Unknown]
  - Urinary tract infection [Unknown]
  - Product dose omission issue [Unknown]

NARRATIVE: CASE EVENT DATE: 20210801
